FAERS Safety Report 10386840 (Version 1)
Quarter: 2014Q1

REPORT INFORMATION
  Report Type: Spontaneous
  Country: US (occurrence: None)
  Receive Date: 20140306
  Receipt Date: 20140306
  Transmission Date: 20141002
  Serious: Yes (Disabling)
  Sender: FDA-Public Use
  Company Number: 163-21880-13061670

PATIENT
  Sex: Female

DRUGS (19)
  1. REVLIMID (LENALIDOMIDE) (25 MILLIGRAM, CAPSULES) [Suspect]
     Indication: PLASMA CELL MYELOMA
     Route: 048
     Dates: start: 20091016
  2. PAMIDRONATE (PAMIDRONATE DISODIUM) [Concomitant]
  3. RESTASIS (CICLOSPORIN) [Concomitant]
  4. ZOMETA (ZOLEDRONIC ACID) [Concomitant]
  5. HYDROMORPHONE [Concomitant]
  6. FOLIC ACID [Concomitant]
  7. OMEPRAZOLE [Concomitant]
  8. VITAMIN B12 (CYANOCOBALAMIN) [Concomitant]
  9. LEVOXYL (LEVOTHYROXINE SODIUM) [Concomitant]
  10. VITAMIN E (TOCOPHEROL) [Concomitant]
  11. FLOVENT (FLUTICASONE PROPIONATE) [Concomitant]
  12. ALBUTEROL (SALBUTAMOL) [Concomitant]
  13. LORATADINE [Concomitant]
  14. CITALOPRAM [Concomitant]
  15. VITAMIN B6 (PYRIDOXINE HYDROCHLORIDE) [Concomitant]
  16. DEXAMETHASONE [Concomitant]
  17. RED YEAST (MONASCUS PURPUREUS) [Concomitant]
  18. ACTONEL (RISEDRONATE SODIUM) [Concomitant]
  19. ALLOPURINOL [Concomitant]

REACTIONS (2)
  - Fatigue [None]
  - Disturbance in attention [None]
